FAERS Safety Report 7413657-8 (Version None)
Quarter: 2011Q2

REPORT INFORMATION
  Report Type: 
  Country: None (occurrence: None)
  Receive Date: 20110413
  Receipt Date: 20110411
  Transmission Date: 20111010
  Serious: Yes (Other)
  Sender: FDA-Public Use
  Company Number: US-PFIZER INC-2011077372

PATIENT
  Sex: Female
  Weight: 60 kg

DRUGS (6)
  1. CHANTIX [Suspect]
     Dosage: 0.5 MG, UNK
     Dates: start: 20110101, end: 20110401
  2. CHANTIX [Suspect]
     Indication: SMOKING CESSATION THERAPY
     Dosage: 0.5 MG, 1X/DAY
     Route: 048
     Dates: start: 20050101
  3. CHANTIX [Suspect]
     Dosage: UNK
     Dates: start: 20110401, end: 20110101
  4. FENOFIBRIC ACID [Concomitant]
     Indication: BLOOD CHOLESTEROL INCREASED
     Dosage: 135 MG DAILY
     Route: 048
  5. LIPITOR [Concomitant]
     Indication: BLOOD CHOLESTEROL INCREASED
     Dosage: 20 MG DAILY
     Route: 048
  6. LISINOPRIL [Concomitant]
     Indication: HYPERTENSION
     Dosage: 10-12.5 MG DAILY
     Route: 048

REACTIONS (6)
  - RASH GENERALISED [None]
  - HEADACHE [None]
  - BLOOD PRESSURE INCREASED [None]
  - NAUSEA [None]
  - NERVOUSNESS [None]
  - PRURITUS [None]
